FAERS Safety Report 9439745 (Version 1)
Quarter: 2013Q3

REPORT INFORMATION
  Report Type: Spontaneous
  Country: US (occurrence: None)
  Receive Date: 20130802
  Receipt Date: 20130802
  Transmission Date: 20140515
  Serious: No
  Sender: FDA-Public Use
  Company Number: None

PATIENT
  Age: 57 None
  Sex: Female
  Weight: 44.45 kg

DRUGS (6)
  1. EVISTA [Suspect]
     Indication: OSTEOPETROSIS
     Route: 048
     Dates: start: 201210, end: 20130518
  2. ACYCLOVIR [Concomitant]
  3. CALCIUM [Concomitant]
  4. OMEGA 2 [Concomitant]
  5. B12 [Concomitant]
  6. BIOTIN [Concomitant]

REACTIONS (2)
  - Vision blurred [None]
  - Excessive eye blinking [None]
